FAERS Safety Report 18537179 (Version 2)
Quarter: 2021Q1

REPORT INFORMATION
  Report Type: Report from Study
  Country: None (occurrence: UY)
  Receive Date: 20201124
  Receipt Date: 20210111
  Transmission Date: 20210419
  Serious: Yes (Other)
  Sender: FDA-Public Use
  Company Number: UY-ABBVIE-20K-168-3661173-00

PATIENT
  Age: 51 Year
  Sex: Female

DRUGS (1)
  1. RINVOQ [Suspect]
     Active Substance: UPADACITINIB
     Indication: RHEUMATOID ARTHRITIS
     Route: 048
     Dates: start: 20200416

REACTIONS (5)
  - Surgery [Not Recovered/Not Resolved]
  - Umbilical hernia [Unknown]
  - Pyrexia [Recovered/Resolved]
  - Procedural pain [Not Recovered/Not Resolved]
  - Surgical failure [Unknown]

NARRATIVE: CASE EVENT DATE: 2020
